FAERS Safety Report 21880868 (Version 1)
Quarter: 2023Q1

REPORT INFORMATION
  Report Type: Spontaneous
  Country: None (occurrence: US)
  Receive Date: 20230118
  Receipt Date: 20230118
  Transmission Date: 20230417
  Serious: Yes (Other)
  Sender: FDA-Public Use
  Company Number: US-GREER Laboratories, Inc.-2136854

PATIENT
  Age: 29 Year
  Sex: Female

DRUGS (24)
  1. DERMATOPHAGOIDES FARINAE\DERMATOPHAGOIDES PTERONYSSINUS [Suspect]
     Active Substance: DERMATOPHAGOIDES FARINAE\DERMATOPHAGOIDES PTERONYSSINUS
     Indication: Hypersensitivity
     Route: 058
     Dates: start: 20221213
  2. BAHIA GRASS POLLEN [Suspect]
     Active Substance: PASPALUM NOTATUM POLLEN
     Route: 058
     Dates: start: 20221213
  3. STANDARDIZED TIMOTHY GRASS POLLEN [Suspect]
     Active Substance: PHLEUM PRATENSE POLLEN
     Route: 058
     Dates: start: 20221213
  4. COCKLEBUR POLLEN [Suspect]
     Active Substance: XANTHIUM STRUMARIUM POLLEN
     Route: 058
     Dates: start: 20221213
  5. SHORT AND GIANT RAGWEED POLLEN MIX [Suspect]
     Active Substance: AMBROSIA ARTEMISIIFOLIA POLLEN\AMBROSIA TRIFIDA POLLEN
     Route: 058
     Dates: start: 20221213
  6. SHEEP RED SORREL [Suspect]
     Active Substance: RUMEX ACETOSELLA POLLEN
     Route: 058
     Dates: start: 20221213
  7. STERILE DILUENT FOR ALLERGENIC EXTRACT (GLYCERIN) [Suspect]
     Active Substance: GLYCERIN
     Route: 058
     Dates: start: 20221213
  8. VIRGINIA LIVE OAK POLLEN [Suspect]
     Active Substance: QUERCUS VIRGINIANA POLLEN
     Route: 058
     Dates: start: 20221213
  9. WHITE OAK POLLEN [Suspect]
     Active Substance: QUERCUS ALBA POLLEN
     Route: 058
     Dates: start: 20221213
  10. PECAN POLLEN [Suspect]
     Active Substance: CARYA ILLINOINENSIS POLLEN
     Route: 058
     Dates: start: 20221213
  11. ELM POLLEN MIX [Suspect]
     Active Substance: ULMUS AMERICANA POLLEN\ULMUS PUMILA POLLEN
     Route: 058
     Dates: start: 20221213
  12. SHELLBARK HICKORY POLLEN [Suspect]
     Active Substance: CARYA LACINIOSA POLLEN
     Route: 058
     Dates: start: 20221213
  13. SHAGBARK HICKORY POLLEN [Suspect]
     Active Substance: CARYA OVATA POLLEN
     Route: 058
     Dates: start: 20221213
  14. WHITE HICKORY POLLEN [Suspect]
     Active Substance: CARYA TOMENTOSA POLLEN
     Route: 058
     Dates: start: 20221213
  15. DILUENT (SODIUM CHLORIDE) [Suspect]
     Active Substance: SODIUM CHLORIDE
     Route: 058
     Dates: start: 20221213
  16. WHITE POPLAR POLLEN [Suspect]
     Active Substance: POPULUS ALBA POLLEN
     Route: 058
     Dates: start: 20221213
  17. AMERICAN SYCAMORE POLLEN [Suspect]
     Active Substance: PLATANUS OCCIDENTALIS POLLEN
     Route: 058
  18. ASH POLLEN MIX [Suspect]
     Active Substance: FRAXINUS AMERICANA POLLEN\FRAXINUS PENNSYLVANICA POLLEN
     Route: 058
     Dates: start: 20221213
  19. BIRCH POLLEN MIX [Suspect]
     Active Substance: BETULA LENTA POLLEN\BETULA NIGRA POLLEN\BETULA POPULIFOLIA POLLEN
     Route: 058
     Dates: start: 20221213
  20. 3 MAPLE POLLEN MIX [Suspect]
     Active Substance: ACER RUBRUM POLLEN\ACER SACCHARINUM POLLEN\ACER SACCHARUM POLLEN
     Route: 058
     Dates: start: 20221213
  21. DILUENT (SODIUM CHLORIDE) [Suspect]
     Active Substance: SODIUM CHLORIDE
     Route: 058
     Dates: start: 20221213
  22. BENADRYL [Concomitant]
     Active Substance: DIPHENHYDRAMINE HYDROCHLORIDE
     Route: 030
  23. SOLU-CORTEF [Concomitant]
     Active Substance: HYDROCORTISONE SODIUM SUCCINATE
     Route: 048
  24. EPIPEN [Concomitant]
     Active Substance: EPINEPHRINE

REACTIONS (1)
  - Anaphylactic reaction [Recovered/Resolved]

NARRATIVE: CASE EVENT DATE: 20221213
